FAERS Safety Report 8604688-0 (Version None)
Quarter: 2012Q3

REPORT INFORMATION
  Report Type: 
  Country: None (occurrence: None)
  Receive Date: 20120820
  Receipt Date: 20120809
  Transmission Date: 20120928
  Serious: Yes (Hospitalization, Other)
  Sender: FDA-Public Use
  Company Number: PHFR2012GB004318

PATIENT
  Sex: Male

DRUGS (2)
  1. CLOZARIL [Suspect]
     Indication: SCHIZOPHRENIA
     Dosage: UNK UKN, UNK
     Route: 048
     Dates: start: 20020621, end: 20120801
  2. CLOZARIL [Suspect]
     Dates: start: 20120803, end: 20120804

REACTIONS (5)
  - BLOOD PRESSURE INCREASED [None]
  - NEUTROPHIL COUNT INCREASED [None]
  - WHITE BLOOD CELL COUNT INCREASED [None]
  - CONVULSION [None]
  - HEART RATE INCREASED [None]
